FAERS Safety Report 9895718 (Version 1)
Quarter: 2014Q1

REPORT INFORMATION
  Report Type: Spontaneous
  Country: US (occurrence: US)
  Receive Date: 20140213
  Receipt Date: 20140213
  Transmission Date: 20141002
  Serious: No
  Sender: FDA-Public Use
  Company Number: US-BRISTOL-MYERS SQUIBB COMPANY-18973735

PATIENT
  Age: 46 Year
  Sex: Female
  Weight: 58.96 kg

DRUGS (4)
  1. ABATACEPT SUBQ INJECTION 125MG/ML [Suspect]
     Indication: RHEUMATOID ARTHRITIS
     Dosage: LAST INJECTION:  27MAY2013
     Dates: start: 20130506
  2. METHOTREXATE [Suspect]
  3. PREDNISONE [Suspect]
     Dosage: 10MG FOR 3 DAYS TAPER DOWNWARD TO 1MG
     Route: 048
  4. CELEBREX [Suspect]
     Route: 048

REACTIONS (1)
  - Drug ineffective [Unknown]
